FAERS Safety Report 5190158-1 (Version None)
Quarter: 2006Q4

REPORT INFORMATION
  Report Type: 
  Country: None (occurrence: None)
  Receive Date: 20061222
  Receipt Date: 20061213
  Transmission Date: 20070319
  Serious: Yes (Other)
  Sender: FDA-Public Use
  Company Number: DK-JNJFOC-20061204863

PATIENT
  Sex: Male
  Weight: 82 kg

DRUGS (4)
  1. REMICADE [Suspect]
     Indication: PSORIASIS
     Route: 042
  2. PERINDOPRIL ERBUMINE [Concomitant]
     Route: 065
  3. CONTALGIN [Concomitant]
     Route: 065
  4. NOBLIGAN [Concomitant]
     Route: 065

REACTIONS (6)
  - BLOOD CREATININE INCREASED [None]
  - BODY TEMPERATURE DECREASED [None]
  - MALAISE [None]
  - NAUSEA [None]
  - TOOTH INFECTION [None]
  - VOMITING [None]
